FAERS Safety Report 15304235 (Version 1)
Quarter: 2018Q3

REPORT INFORMATION
  Report Type: Spontaneous
  Country: US (occurrence: US)
  Receive Date: 20180821
  Receipt Date: 20180821
  Transmission Date: 20181010
  Serious: No
  Sender: FDA-Public Use
  Company Number: US-AMGEN INC.-USASP2018107502

PATIENT
  Age: 58 Year
  Sex: Female

DRUGS (1)
  1. AIMOVIG [Suspect]
     Active Substance: ERENUMAB-AOOE
     Indication: MIGRAINE PROPHYLAXIS
     Dosage: 70 MG, QMO
     Route: 065
     Dates: start: 20180731

REACTIONS (7)
  - Dehydration [Not Recovered/Not Resolved]
  - Impaired work ability [Unknown]
  - Impaired driving ability [Unknown]
  - Migraine [Recovered/Resolved]
  - Gait disturbance [Unknown]
  - Mobility decreased [Unknown]
  - Constipation [Unknown]

NARRATIVE: CASE EVENT DATE: 2018
